FAERS Safety Report 16210569 (Version 1)
Quarter: 2019Q2

REPORT INFORMATION
  Report Type: Spontaneous
  Country: FR (occurrence: FR)
  Receive Date: 20190418
  Receipt Date: 20190418
  Transmission Date: 20190711
  Serious: Yes (Hospitalization)
  Sender: FDA-Public Use
  Company Number: FR-SUN PHARMACEUTICAL INDUSTRIES LTD-2019RR-205552

PATIENT
  Age: 60 Year
  Sex: Male
  Weight: 80 kg

DRUGS (10)
  1. LANSOPRAZOLE. [Suspect]
     Active Substance: LANSOPRAZOLE
     Indication: PROPHYLAXIS AGAINST GASTROINTESTINAL ULCER
     Dosage: 15 MILLIGRAM, DAILY
     Route: 048
     Dates: start: 20181111, end: 20181220
  2. VANCOMYCINE [Suspect]
     Active Substance: VANCOMYCIN
     Indication: ENDOCARDITIS BACTERIAL
     Dosage: SELON DOSAGE ()
     Route: 042
     Dates: start: 20181106, end: 20181218
  3. LOVENOX [Concomitant]
     Active Substance: ENOXAPARIN SODIUM
     Indication: PRODUCT USED FOR UNKNOWN INDICATION
     Dosage: 12000 INTERNATIONAL UNIT, DAILY
     Route: 058
     Dates: start: 20181216
  4. LEVOFLOXACINE KABI 5 MG/ML, SOLUTION POUR PERFUSION [Suspect]
     Active Substance: LEVOFLOXACIN
     Indication: ENDOCARDITIS BACTERIAL
     Dosage: 1000 MILLIGRAM, DAILY
     Route: 042
     Dates: start: 20181106, end: 20181218
  5. PANTOPRAZOLE [Suspect]
     Active Substance: PANTOPRAZOLE
     Indication: PROPHYLAXIS AGAINST GASTROINTESTINAL ULCER
     Dosage: VOIR COMMENTAIRE (POUR ARR?TS DE TRAITEMENTS)
     Route: 042
     Dates: start: 20181104, end: 20181119
  6. INEXIUM 40 MG, POUDRE POUR SOLUTION INJECTABLE OU POUR PERFUSION [Concomitant]
     Active Substance: ESOMEPRAZOLE
     Indication: PROPHYLAXIS AGAINST GASTROINTESTINAL ULCER
     Dosage: IN TOTAL
     Route: 042
     Dates: start: 20181103, end: 20181103
  7. CLOPIDOGREL [Concomitant]
     Active Substance: CLOPIDOGREL BISULFATE
     Indication: ISCHAEMIC HEART DISEASE PROPHYLAXIS
     Dosage: 1 DOSAGE FORM, DAILY
     Route: 048
     Dates: start: 20181124, end: 20181209
  8. HEPARINE SODIQUE PANPHARMA [Concomitant]
     Active Substance: HEPARIN SODIUM
     Indication: THROMBOSIS PROPHYLAXIS
     Dosage: SELON ANTI-XA ()
     Route: 042
     Dates: start: 20181103, end: 20181215
  9. KARDEGIC [Concomitant]
     Active Substance: ASPIRIN DL-LYSINE
     Indication: ISCHAEMIC HEART DISEASE PROPHYLAXIS
     Dosage: 1 DOSAGE FORM, DAILY
     Route: 048
     Dates: start: 20181103
  10. PRAVASTATINE SODIQUE [Concomitant]
     Active Substance: PRAVASTATIN SODIUM
     Indication: PRODUCT USED FOR UNKNOWN INDICATION
     Dosage: 1 DOSAGE FORM, DAILY
     Route: 065

REACTIONS (1)
  - Thrombocytopenia [Recovered/Resolved]

NARRATIVE: CASE EVENT DATE: 20181106
